FAERS Safety Report 8139806-4 (Version None)
Quarter: 2012Q1

REPORT INFORMATION
  Report Type: 
  Country: None (occurrence: None)
  Receive Date: 20120215
  Receipt Date: 20120207
  Transmission Date: 20120608
  Serious: Yes (Hospitalization)
  Sender: FDA-Public Use
  Company Number: US-CELGENEUS-163-21880-11120974

PATIENT
  Sex: Female
  Weight: 56 kg

DRUGS (7)
  1. COLESTIPOL HYDROCHLORIDE [Concomitant]
     Route: 065
  2. ASPIRIN [Concomitant]
     Route: 065
  3. REVLIMID [Suspect]
     Dosage: 10 MILLIGRAM
     Route: 048
     Dates: start: 20110705
  4. CITALOPRAM HYDROBROMIDE [Concomitant]
     Route: 065
  5. SIMVASTATIN [Concomitant]
     Route: 065
  6. REVLIMID [Suspect]
     Indication: MULTIPLE MYELOMA
     Dosage: 10 MILLIGRAM
     Route: 048
     Dates: start: 20110605
  7. RANITIDINE [Concomitant]
     Route: 065

REACTIONS (5)
  - LIGAMENT SPRAIN [None]
  - FALL [None]
  - RASH [None]
  - FLATULENCE [None]
  - BACK PAIN [None]
